FAERS Safety Report 7421412-8 (Version None)
Quarter: 2011Q2

REPORT INFORMATION
  Report Type: 
  Country: None (occurrence: None)
  Receive Date: 20110418
  Receipt Date: 20110408
  Transmission Date: 20111010
  Serious: Yes (Other)
  Sender: FDA-Public Use
  Company Number: ES-ROCHE-766120

PATIENT
  Sex: Male
  Weight: 69 kg

DRUGS (11)
  1. INSULATARD [Concomitant]
     Indication: DIABETES MELLITUS
     Dosage: 30-0-12 IU
     Route: 058
  2. ACOVIL [Concomitant]
     Dosage: 2.5 MG/24 HR
  3. METHOTREXATE [Concomitant]
     Indication: RHEUMATOID ARTHRITIS
     Route: 058
     Dates: start: 20090310
  4. METFORMIN [Concomitant]
     Indication: DIABETES MELLITUS
     Dosage: 850 MG/8H
     Route: 048
  5. ASPIRIN [Concomitant]
     Route: 048
     Dates: start: 20080101
  6. BISOPROLOL [Concomitant]
     Dosage: 5 MG/12 HR
  7. ROACTEMRA [Suspect]
     Indication: RHEUMATOID ARTHRITIS
     Dosage: FORM: INFUSION
     Route: 042
     Dates: start: 20100826, end: 20110111
  8. MOLSIDOMINE [Concomitant]
     Route: 048
     Dates: start: 20080101
  9. CEMIDON [Concomitant]
     Indication: TUBERCULOSIS
     Route: 048
     Dates: start: 20100722
  10. CLOPIDOGREL [Concomitant]
     Route: 048
     Dates: start: 20080101
  11. CAFINITRINA [Concomitant]

REACTIONS (1)
  - LEUKOCYTOCLASTIC VASCULITIS [None]
